FAERS Safety Report 20768200 (Version 1)
Quarter: 2022Q2

REPORT INFORMATION
  Report Type: Spontaneous
  Country: US (occurrence: US)
  Receive Date: 20220429
  Receipt Date: 20220429
  Transmission Date: 20220721
  Serious: No
  Sender: FDA-Public Use
  Company Number: US-MAYNE PHARMA-2022MYN000065

PATIENT
  Age: 92 Year
  Sex: Female

DRUGS (1)
  1. FLUOROURACIL [Suspect]
     Active Substance: FLUOROURACIL
     Indication: Skin injury
     Dosage: 5 %, BID
     Route: 061
     Dates: start: 20220215, end: 20220228

REACTIONS (6)
  - Skin irritation [Unknown]
  - Application site pain [Unknown]
  - Application site pruritus [Unknown]
  - Application site pain [Unknown]
  - Swelling face [Unknown]
  - Expired product administered [Unknown]

NARRATIVE: CASE EVENT DATE: 20220215
